FAERS Safety Report 8033085-4 (Version None)
Quarter: 2012Q1

REPORT INFORMATION
  Report Type: 
  Country: None (occurrence: None)
  Receive Date: 20120110
  Receipt Date: 20120105
  Transmission Date: 20120608
  Serious: Yes (Life-Threatening, Hospitalization, Other)
  Sender: FDA-Public Use
  Company Number: US-BAYER-2011-044964

PATIENT
  Age: 45 Year
  Sex: Female
  Weight: 81.633 kg

DRUGS (6)
  1. YAZ [Suspect]
     Indication: CONTRACEPTION
     Dosage: UNK
     Route: 048
     Dates: start: 20080101, end: 20100101
  2. WELLBUTRIN XL [Concomitant]
  3. LEXAPRO [Concomitant]
     Indication: ANXIETY
     Dosage: 20 MG, QD
     Route: 048
     Dates: start: 20090101, end: 20110101
  4. LIPITOR [Concomitant]
     Dosage: 80 MG, QD
     Route: 048
     Dates: start: 20000101
  5. XANAX [Concomitant]
     Indication: SLEEP DISORDER
  6. ALBUTEROL SULFATE [Concomitant]
     Dosage: 2 PUFF(S), QD, 109 MCG/ACT
     Route: 055

REACTIONS (10)
  - INJURY [None]
  - EMOTIONAL DISTRESS [None]
  - INTRACARDIAC THROMBUS [None]
  - FEAR [None]
  - DEPRESSION [None]
  - PULMONARY EMBOLISM [None]
  - AMNESIA [None]
  - PAIN [None]
  - ANHEDONIA [None]
  - ANXIETY [None]
